FAERS Safety Report 8636285 (Version 2)
Quarter: 2012Q4

REPORT INFORMATION
  Report Type: Spontaneous
  Country: CA (occurrence: None)
  Receive Date: 20120612
  Receipt Date: 20120921
  Transmission Date: 20130627
  Serious: Yes (Other)
  Sender: FDA-Public Use
  Company Number: 2012-002033

PATIENT
  Age: 76 Year
  Sex: Female
  Weight: 75 kg

DRUGS (2)
  1. ACTONEL [Suspect]
     Indication: OSTEOPOROSIS
     Route: 048
  2. NORVASC [Concomitant]

REACTIONS (11)
  - Gait disturbance [None]
  - Bone pain [None]
  - Pain in extremity [None]
  - Insomnia [None]
  - Pain [None]
  - Back pain [None]
  - Arthralgia [None]
  - Arthralgia [None]
  - Arthralgia [None]
  - Arthralgia [None]
  - Grip strength decreased [None]
